FAERS Safety Report 5480801-1 (Version None)
Quarter: 2007Q4

REPORT INFORMATION
  Report Type: 
  Country: None (occurrence: None)
  Receive Date: 20071009
  Receipt Date: 20070927
  Transmission Date: 20080405
  Serious: Yes (Hospitalization)
  Sender: FDA-Public Use
  Company Number: US-PFIZER INC-2006095553

PATIENT
  Sex: Female
  Weight: 49.9 kg

DRUGS (5)
  1. SU-011,248 [Suspect]
     Indication: BREAST CANCER
     Route: 048
  2. PACLITAXEL [Suspect]
     Indication: BREAST CANCER
     Route: 042
  3. PRAVACHOL [Concomitant]
     Route: 048
  4. PREVACID [Concomitant]
     Route: 048
     Dates: start: 19980101
  5. ULTRAM [Concomitant]
     Route: 048
     Dates: start: 20060601, end: 20060726

REACTIONS (2)
  - HERPES ZOSTER [None]
  - POST HERPETIC NEURALGIA [None]
